FAERS Safety Report 21359202 (Version 1)
Quarter: 2022Q3

REPORT INFORMATION
  Report Type: Spontaneous
  Country: US (occurrence: None)
  Receive Date: 20220920
  Receipt Date: 20220920
  Transmission Date: 20221027
  Serious: Yes (Hospitalization)
  Sender: FDA-Public Use
  Company Number: None

PATIENT
  Sex: Female

DRUGS (11)
  1. AMBRISENTAN [Suspect]
     Active Substance: AMBRISENTAN
     Indication: Pulmonary hypertension
     Dosage: FREQUENCY : DAILY;?
     Route: 048
  2. ASPIRIN EC LOW DOSE [Concomitant]
  3. VITAMIN B COMPLEX [Concomitant]
     Active Substance: CYANOCOBALAMIN\DEXPANTHENOL\NIACINAMIDE\PYRIDOXINE HYDROCHLORIDE\RIBOFLAVIN 5^-PHOSPHATE SODIUM\THIA
  4. FOLIC ACID [Concomitant]
     Active Substance: FOLIC ACID
  5. TADALAFIL [Concomitant]
     Active Substance: TADALAFIL
  6. CARVEDILOL [Concomitant]
     Active Substance: CARVEDILOL
  7. PANTOPRAZOLE SODIUM [Concomitant]
     Active Substance: PANTOPRAZOLE SODIUM
  8. COLCHICINE [Concomitant]
     Active Substance: COLCHICINE
  9. CALCITRIOL [Concomitant]
     Active Substance: CALCITRIOL
  10. ETHACRYNIC ACID [Concomitant]
     Active Substance: ETHACRYNIC ACID
  11. EZETIMIBE [Concomitant]
     Active Substance: EZETIMIBE

REACTIONS (1)
  - Hospitalisation [None]
